FAERS Safety Report 6732880-9 (Version None)
Quarter: 2010Q2

REPORT INFORMATION
  Report Type: 
  Country: None (occurrence: None)
  Receive Date: 20100519
  Receipt Date: 20100505
  Transmission Date: 20101027
  Serious: Yes (Hospitalization)
  Sender: FDA-Public Use
  Company Number: A0854805A

PATIENT
  Age: 64 Year
  Sex: Male
  Weight: 65.5 kg

DRUGS (1)
  1. ARZERRA [Suspect]
     Dosage: 300MG VARIABLE DOSE
     Route: 042
     Dates: start: 20100322

REACTIONS (8)
  - ANAEMIA [None]
  - FOOD POISONING [None]
  - INFUSION RELATED REACTION [None]
  - OROPHARYNGEAL PAIN [None]
  - PRURITUS [None]
  - RASH PRURITIC [None]
  - THROAT IRRITATION [None]
  - THROMBOCYTOPENIA [None]
